FAERS Safety Report 11766144 (Version 1)
Quarter: 2015Q4

REPORT INFORMATION
  Report Type: Report from Study
  Country: US (occurrence: US)
  Receive Date: 20151122
  Receipt Date: 20151122
  Transmission Date: 20160304
  Serious: Yes (Hospitalization, Other)
  Sender: FDA-Public Use
  Company Number: US-ROCHE-1664186

PATIENT
  Sex: Male

DRUGS (1)
  1. NUTROPIN AQ [Suspect]
     Active Substance: SOMATROPIN
     Indication: PRODUCT USED FOR UNKNOWN INDICATION
     Route: 058

REACTIONS (7)
  - Pneumonia [Unknown]
  - Hypoaesthesia [Not Recovered/Not Resolved]
  - Type 2 diabetes mellitus [Unknown]
  - Renal failure [Unknown]
  - Cardiac failure [Unknown]
  - Paraesthesia [Unknown]
  - Tremor [Unknown]
